FAERS Safety Report 10166299 (Version 1)
Quarter: 2014Q2

REPORT INFORMATION
  Report Type: Spontaneous
  Country: US (occurrence: US)
  Receive Date: 20140512
  Receipt Date: 20140512
  Transmission Date: 20141212
  Serious: No
  Sender: FDA-Public Use
  Company Number: US-009507513-1405USA005312

PATIENT
  Sex: Male

DRUGS (1)
  1. CORICIDIN HBP CHEST CONGESTION AND COUGH [Suspect]
     Indication: OROPHARYNGEAL PAIN
     Dosage: UNK, UNKNOWN
     Route: 048

REACTIONS (4)
  - Drug effect incomplete [Unknown]
  - Off label use [Unknown]
  - Circumstance or information capable of leading to medication error [Unknown]
  - Incorrect route of drug administration [Unknown]
